FAERS Safety Report 5349275-5 (Version None)
Quarter: 2007Q2

REPORT INFORMATION
  Report Type: 
  Country: None (occurrence: None)
  Receive Date: 20070607
  Receipt Date: 20070604
  Transmission Date: 20071010
  Serious: Yes (Hospitalization)
  Sender: FDA-Public Use
  Company Number: A0654066A

PATIENT
  Age: 53 Year
  Sex: Female

DRUGS (8)
  1. TYKERB [Suspect]
     Indication: BREAST CANCER
     Dosage: 5TAB PER DAY
     Route: 048
     Dates: start: 20070514, end: 20070531
  2. GEMZAR [Concomitant]
  3. TAMOXIFEN [Concomitant]
  4. DEXAMETHASONE 0.5MG TAB [Concomitant]
  5. PROTONIX [Concomitant]
  6. ZOLOFT [Concomitant]
  7. METOPROLOL SUCCINATE [Concomitant]
  8. COLACE [Concomitant]

REACTIONS (4)
  - CHOKING SENSATION [None]
  - DYSPNOEA [None]
  - FUNGAL OESOPHAGITIS [None]
  - HEART RATE INCREASED [None]
